FAERS Safety Report 5960277-8 (Version None)
Quarter: 2008Q4

REPORT INFORMATION
  Report Type: 
  Country: None (occurrence: None)
  Receive Date: 20081118
  Receipt Date: 20081118
  Transmission Date: 20090506
  Serious: Yes (Hospitalization)
  Sender: FDA-Public Use
  Company Number: None

PATIENT
  Sex: Male
  Weight: 79.3795 kg

DRUGS (1)
  1. ERBITUX [Suspect]
     Indication: NON-SMALL CELL LUNG CANCER
     Dosage: 498 WEEKLY IV DRIP
     Route: 041
     Dates: start: 20081028, end: 20081111

REACTIONS (5)
  - CONFUSIONAL STATE [None]
  - GAIT DISTURBANCE [None]
  - HYPOAESTHESIA [None]
  - INAPPROPRIATE AFFECT [None]
  - TUNNEL VISION [None]
